FAERS Safety Report 11674330 (Version 1)
Quarter: 2015Q4

REPORT INFORMATION
  Report Type: Spontaneous
  Country: US (occurrence: US)
  Receive Date: 20151027
  Receipt Date: 20151027
  Transmission Date: 20160304
  Serious: No
  Sender: FDA-Public Use
  Company Number: US-ELI_LILLY_AND_COMPANY-US201007006748

PATIENT
  Age: 63 Year
  Sex: Female

DRUGS (1)
  1. FORTEO [Suspect]
     Active Substance: TERIPARATIDE
     Dosage: UNK, UNKNOWN
     Route: 065

REACTIONS (8)
  - Bronchitis [Unknown]
  - Heart rate increased [Unknown]
  - Sinusitis [Unknown]
  - Pain in extremity [Unknown]
  - Dyspnoea [Unknown]
  - Asthenia [Unknown]
  - Oropharyngeal pain [Unknown]
  - Headache [Unknown]
